FAERS Safety Report 8764952 (Version 1)
Quarter: 2012Q4

REPORT INFORMATION
  Report Type: 
  Country: FR (occurrence: FR)
  Receive Date: 20120903
  Receipt Date: 20120903
  Transmission Date: 20130627
  Serious: Yes (Hospitalization, Other)
  Sender: FDA-Public Use
  Company Number: FR-BRISTOL-MYERS SQUIBB COMPANY-16891384

PATIENT
  Age: 59 Year
  Sex: Female

DRUGS (2)
  1. SPRYCEL [Suspect]
     Indication: CHRONIC MYELOID LEUKAEMIA
     Dosage: Interrupted: Oct2010, Rechallenged: Feb2012
     Dates: start: 200702, end: 201207
  2. GLIVEC [Suspect]
     Indication: CHRONIC MYELOID LEUKAEMIA
     Dates: start: 200502, end: 2006

REACTIONS (3)
  - Ascites [Unknown]
  - Hepatic cirrhosis [Unknown]
  - Diarrhoea [Unknown]
